FAERS Safety Report 9710729 (Version 1)
Quarter: 2013Q4

REPORT INFORMATION
  Report Type: Spontaneous
  Country: US (occurrence: US)
  Receive Date: 20131126
  Receipt Date: 20131126
  Transmission Date: 20140711
  Serious: Yes (Other)
  Sender: FDA-Public Use
  Company Number: US-BRISTOL-MYERS SQUIBB COMPANY-18953554

PATIENT
  Age: 61 Year
  Sex: Female
  Weight: 63.96 kg

DRUGS (17)
  1. BYETTA [Suspect]
     Dosage: 11FEB2008-04NOV2008,5MCG?04NOV2008-16JUN2010
     Dates: start: 20081104, end: 20100616
  2. CLONAZEPAM [Concomitant]
     Dosage: TABS,DOSE:1,FREQ:BEDTIME,90 TABS
     Dates: start: 20100802
  3. LANTUS [Concomitant]
     Dosage: 50(UNITS NOS).FREQ:1*DAILY,90 DAYS?30DEC1899-28MAY2008?16JUN2010-ONG?10(UNITS NOS).
     Route: 058
  4. GLIMEPIRIDE [Concomitant]
     Dosage: 4MG,2MG SCORED TABS,DOSE:1,FREQ:2* DAILY.180 TABS?10MAY2010
     Dates: start: 20090609, end: 20100510
  5. SYNTHROID [Concomitant]
     Dosage: 90 TABS?11FEB2007-10MAY2010,50MCG,1*DAILY
     Dates: start: 20070211
  6. PANTOPRAZOLE [Concomitant]
     Dosage: 40MG TABS,1*DAILY,90 TABS
     Dates: start: 20100119
  7. ZOLPIDEM [Concomitant]
     Dosage: 10MG TABS,BEDTIME
     Dates: start: 20090916, end: 20100802
  8. PRAVASTATIN SODIUM [Concomitant]
     Dosage: TABS
     Dates: start: 20081007
  9. NOVOLIN [Concomitant]
     Dosage: 20(UNITS NOS).
     Route: 058
     Dates: start: 20080603, end: 20081007
  10. ACTOS [Concomitant]
     Dosage: 21AUG2006-17MAR2008,45MG,FREQ:1*DAILY
     Dates: start: 20080317, end: 20081007
  11. LOVASTATIN [Concomitant]
     Dosage: TABS?09JUL2007-11FEB2008,40MG TABS
     Dates: start: 20080228, end: 20081007
  12. GLYBURIDE [Concomitant]
     Dosage: 01JAN2005-27NOV2006,2.5MG,DOSE:2*DAILY?27NOV2006-07OCT2008
     Dates: start: 20050101, end: 20081007
  13. CRESTOR [Concomitant]
     Dates: start: 20070317, end: 20080228
  14. METFORMIN [Concomitant]
     Dosage: 22SEP2009,500MG TABS,2*DAILY
     Dates: start: 19960101, end: 20081107
  15. CARISOPRODOL [Concomitant]
     Dosage: AS NECESSARY
     Dates: start: 20070312, end: 20081007
  16. HYDROCODONE [Concomitant]
     Dosage: 5/500MG TABS,4*DAILY AS NECESSARY
     Dates: start: 20070312, end: 20081007
  17. PROCHLORPERAZINE [Concomitant]
     Dates: start: 20070124, end: 20081007

REACTIONS (4)
  - Pancreatitis acute [Unknown]
  - Dehydration [Unknown]
  - Diabetes mellitus inadequate control [Unknown]
  - Anxiety [Unknown]
